FAERS Safety Report 6920163-3 (Version None)
Quarter: 2010Q3

REPORT INFORMATION
  Report Type: 
  Country: None (occurrence: None)
  Receive Date: 20100809
  Receipt Date: 20100726
  Transmission Date: 20110219
  Serious: Yes (Death)
  Sender: FDA-Public Use
  Company Number: 2010PI000553

PATIENT
  Age: 17 Year
  Sex: Female

DRUGS (3)
  1. MALATHION [Suspect]
  2. CON MEDS [Concomitant]
  3. PREV MEDS [Concomitant]

REACTIONS (8)
  - ACUTE PULMONARY OEDEMA [None]
  - CARDIAC DISORDER [None]
  - CARDIOGENIC SHOCK [None]
  - CHEMICAL POISONING [None]
  - CHOLINERGIC SYNDROME [None]
  - COMA [None]
  - MYOCARDIAL INFARCTION [None]
  - SUBENDOCARDIAL ISCHAEMIA [None]
